FAERS Safety Report 16148586 (Version 3)
Quarter: 2019Q2

REPORT INFORMATION
  Report Type: Spontaneous
  Country: BR (occurrence: BR)
  Receive Date: 20190402
  Receipt Date: 20190504
  Transmission Date: 20190711
  Serious: Yes (Other)
  Sender: FDA-Public Use
  Company Number: PHHY2019BR066554

PATIENT
  Sex: Female
  Weight: 94 kg

DRUGS (15)
  1. TOPIRAMATE SANDOZ [Suspect]
     Active Substance: TOPIRAMATE
     Indication: TRIGEMINAL NEURALGIA
     Dosage: 50 MG, QD
     Route: 048
     Dates: start: 20190310
  2. TRAMAL [Concomitant]
     Active Substance: TRAMADOL
     Indication: NEURALGIA
     Dosage: UNK UNK, QD
     Route: 048
     Dates: start: 201812
  3. CARBAMAZEPINE. [Suspect]
     Active Substance: CARBAMAZEPINE
     Indication: TRIGEMINAL NEURALGIA
  4. DULOXETINE. [Concomitant]
     Active Substance: DULOXETINE
     Indication: ANXIETY
     Dosage: UNK UNK, QD (2 YEARS AGO)
     Route: 048
  5. PREGABALINE [Concomitant]
     Active Substance: PREGABALIN
     Indication: PAIN
     Dosage: UNK UNK, BID (2 YEARS AGO)
     Route: 048
  6. ENALAPRIL [Concomitant]
     Active Substance: ENALAPRIL
     Indication: BLOOD PRESSURE ABNORMAL
     Dosage: UNK UNK, BID (MANY YEARS AGO PROBABLY 6 YEARS AGO)
     Route: 048
  7. TOPIRAMATE SANDOZ [Suspect]
     Active Substance: TOPIRAMATE
     Indication: PAIN
     Dosage: UNK
     Route: 065
  8. FLUOXETINE [Concomitant]
     Active Substance: FLUOXETINE HYDROCHLORIDE
     Indication: ANXIETY
     Dosage: UNK UNK, QD
     Route: 048
     Dates: start: 201812
  9. TOPIRAMATO [Concomitant]
     Active Substance: TOPIRAMATE
     Indication: TRIGEMINAL NEURALGIA
  10. RIVOTRIL [Concomitant]
     Active Substance: CLONAZEPAM
     Indication: DEPRESSION
     Dosage: UNK (MORE THAN 20 YEAR AGO, RESTARTED IN DEC2018) (ONCE A DAILY SOMETIMES TWICE)
     Route: 048
     Dates: start: 201812
  11. RIVOTRIL [Concomitant]
     Active Substance: CLONAZEPAM
     Indication: ANXIETY
  12. PREGABALINE [Concomitant]
     Active Substance: PREGABALIN
     Indication: TRIGEMINAL NEURALGIA
  13. CARBAMAZEPINE. [Suspect]
     Active Substance: CARBAMAZEPINE
     Indication: ANXIETY
     Dosage: UNK, TID MORE THAN 20 YEAR AGO, RESTARTED IN DEC2018
     Route: 048
     Dates: start: 201812
  14. TOPIRAMATO [Concomitant]
     Active Substance: TOPIRAMATE
     Indication: PAIN
     Dosage: UNK UNK, QD
     Route: 048
  15. LOSARTAN. [Concomitant]
     Active Substance: LOSARTAN
     Indication: BLOOD PRESSURE ABNORMAL
     Dosage: UNK UNK, BID (MANY YEARS AGO)
     Route: 048

REACTIONS (6)
  - Pain [Recovered/Resolved]
  - Dizziness [Recovered/Resolved]
  - Drug ineffective [Recovered/Resolved]
  - Trigeminal neuralgia [Recovered/Resolved]
  - Pruritus generalised [Recovered/Resolved]
  - Speech disorder [Recovered/Resolved]
